FAERS Safety Report 10359189 (Version 1)
Quarter: 2014Q3

REPORT INFORMATION
  Report Type: Spontaneous
  Country: US (occurrence: None)
  Receive Date: 20140731
  Receipt Date: 20140731
  Transmission Date: 20150326
  Serious: Yes (Hospitalization)
  Sender: FDA-Public Use
  Company Number: None

PATIENT
  Age: 27 Year
  Sex: Male

DRUGS (1)
  1. POLYETHYLENE GLYCOL (3350) [Suspect]
     Active Substance: POLYETHYLENE GLYCOL 3500
     Indication: CONSTIPATION
     Dates: start: 20140730

REACTIONS (2)
  - Large intestine perforation [None]
  - Pain [None]
